FAERS Safety Report 9314151 (Version 1)
Quarter: 2013Q2

REPORT INFORMATION
  Report Type: Spontaneous
  Country: US (occurrence: US)
  Receive Date: 20130529
  Receipt Date: 20130529
  Transmission Date: 20140414
  Serious: No
  Sender: FDA-Public Use
  Company Number: US-009507513-1305USA003604

PATIENT
  Age: 41 Year
  Sex: Female

DRUGS (9)
  1. PROVENTIL [Suspect]
     Indication: HYPERSENSITIVITY
     Dosage: UNK
     Route: 055
  2. PROVENTIL [Suspect]
     Indication: ASTHMA
  3. SINGULAIR [Suspect]
     Dosage: UNK
  4. GABAPENTIN [Concomitant]
     Dosage: 300MG
  5. CYCLOBENZAPRINE HYDROCHLORIDE [Concomitant]
     Dosage: 10MG
  6. BENICAR [Concomitant]
  7. ZYRTEC [Concomitant]
  8. FLOVENT [Concomitant]
  9. MONTELUKAST [Concomitant]

REACTIONS (1)
  - Palpitations [Recovered/Resolved]
